FAERS Safety Report 5441657-6 (Version None)
Quarter: 2007Q3

REPORT INFORMATION
  Report Type: 
  Country: None (occurrence: None)
  Receive Date: 20070829
  Receipt Date: 20070814
  Transmission Date: 20080115
  Serious: Yes (Life-Threatening, Hospitalization)
  Sender: FDA-Public Use
  Company Number: 2007RR-08679

PATIENT
  Age: 70 Year
  Sex: Male

DRUGS (3)
  1. LISINOPRIL [Suspect]
     Dosage: 25 MG, QD, ORAL
     Route: 048
  2. LIDOCAINE HCL [Suspect]
     Indication: LOCAL ANAESTHESIA
     Dosage: TOPICAL
     Route: 061
  3. PHENYLEPHRINE (PHENYLEPHRINE) [Concomitant]

REACTIONS (13)
  - ANGIOEDEMA [None]
  - CONVULSION [None]
  - LARYNGEAL STENOSIS [None]
  - OBSTRUCTIVE AIRWAYS DISORDER [None]
  - OEDEMA MUCOSAL [None]
  - PALLOR [None]
  - PULSE ABSENT [None]
  - RENAL FAILURE ACUTE [None]
  - RESPIRATORY ARREST [None]
  - RESTLESSNESS [None]
  - SKIN TEST POSITIVE [None]
  - SWOLLEN TONGUE [None]
  - TRACHEOSTOMY [None]
